FAERS Safety Report 6566925-6 (Version None)
Quarter: 2010Q1

REPORT INFORMATION
  Report Type: 
  Country: None (occurrence: None)
  Receive Date: 20100202
  Receipt Date: 20100127
  Transmission Date: 20100710
  Serious: Yes (Hospitalization)
  Sender: FDA-Public Use
  Company Number: FR-BRISTOL-MYERS SQUIBB COMPANY-14947261

PATIENT
  Sex: Male

DRUGS (2)
  1. ABILIFY [Suspect]
  2. PAROXETINE HCL [Concomitant]

REACTIONS (4)
  - AGITATION [None]
  - DELUSION [None]
  - EXTRAPYRAMIDAL DISORDER [None]
  - NEUROLEPTIC MALIGNANT SYNDROME [None]
